FAERS Safety Report 8353738-8 (Version None)
Quarter: 2012Q2

REPORT INFORMATION
  Report Type: 
  Country: None (occurrence: None)
  Receive Date: 20120511
  Receipt Date: 20111012
  Transmission Date: 20120825
  Serious: No
  Sender: FDA-Public Use
  Company Number: US-GLAXOSMITHKLINE-A0948829A

PATIENT
  Age: 44 Year
  Sex: Female

DRUGS (6)
  1. TAMOXIFEN CITRATE [Concomitant]
  2. HERCEPTIN [Concomitant]
  3. SYNTHROID [Concomitant]
  4. FISH OIL [Concomitant]
  5. EFFEXOR [Concomitant]
  6. TYKERB [Suspect]
     Indication: BREAST CANCER
     Dosage: 5TAB PER DAY
     Route: 048
     Dates: start: 20101215, end: 20110615

REACTIONS (1)
  - BLISTER [None]
